FAERS Safety Report 17429796 (Version 9)
Quarter: 2024Q4

REPORT INFORMATION
  Report Type: Spontaneous
  Country: US (occurrence: US)
  Receive Date: 20200218
  Receipt Date: 20241108
  Transmission Date: 20250114
  Serious: Yes (Disabling, Other)
  Sender: PFIZER
  Company Number: US-PFIZER INC-2020064929

PATIENT
  Age: 56 Year
  Sex: Female
  Weight: 58.06 kg

DRUGS (4)
  1. XELJANZ XR [Suspect]
     Active Substance: TOFACITINIB CITRATE
     Indication: Psoriatic arthropathy
     Dosage: 11 MG, 1X/DAY (FOR FOUR OR FIVE MONTHS)
     Route: 048
     Dates: start: 2019
  2. XELJANZ XR [Suspect]
     Active Substance: TOFACITINIB CITRATE
     Dosage: 11 MG, ALTERNATE DAY
  3. XELJANZ XR [Suspect]
     Active Substance: TOFACITINIB CITRATE
     Dosage: 11 MG, 1X/DAY
     Route: 048
     Dates: start: 202002
  4. XELJANZ XR [Suspect]
     Active Substance: TOFACITINIB CITRATE
     Dosage: 11 MG, ALTERNATE DAY

REACTIONS (11)
  - Drug ineffective [Not Recovered/Not Resolved]
  - Fall [Unknown]
  - Patella fracture [Unknown]
  - Intentional product misuse [Unknown]
  - Arthralgia [Unknown]
  - Condition aggravated [Unknown]
  - Stress [Unknown]
  - Illness [Unknown]
  - Condition aggravated [Unknown]
  - Therapeutic response unexpected [Unknown]
  - Aphonia [Unknown]

NARRATIVE: CASE EVENT DATE: 20190101
